FAERS Safety Report 15110563 (Version 2)
Quarter: 2018Q3

REPORT INFORMATION
  Report Type: Spontaneous
  Country: PT (occurrence: PT)
  Receive Date: 20180705
  Receipt Date: 20180817
  Transmission Date: 20181010
  Serious: Yes (Hospitalization, Other)
  Sender: FDA-Public Use
  Company Number: PT-PFIZER INC-2018267742

PATIENT
  Age: 81 Year
  Sex: Male

DRUGS (7)
  1. ASPIRINA [Concomitant]
     Active Substance: ASPIRIN
     Dosage: 100 MG, 1X/DAY
     Route: 048
  2. FUROSEMIDE. [Concomitant]
     Active Substance: FUROSEMIDE
     Dosage: 40 MG, UNK
     Route: 048
  3. VARFINE [Concomitant]
     Active Substance: WARFARIN SODIUM
     Dosage: UNK
     Route: 048
  4. ATORVASTATINA [Suspect]
     Active Substance: ATORVASTATIN
     Dosage: 40 MG, 1X/DAY
     Route: 048
  5. SPIRONOLACTONE. [Interacting]
     Active Substance: SPIRONOLACTONE
     Dosage: 12.5 MG, 1X/DAY
  6. COLCHICINE. [Interacting]
     Active Substance: COLCHICINE
     Dosage: 1 DF, 1X/DAY (SINCE DISCHARGE FROM CARDIOTHORACIC SURGERY)
     Route: 048
     Dates: start: 20180325, end: 20180511
  7. PANTOPRAZOLE [Concomitant]
     Active Substance: PANTOPRAZOLE
     Dosage: UNK

REACTIONS (5)
  - Diarrhoea [Recovered/Resolved]
  - Drug interaction [Unknown]
  - Rhabdomyolysis [Recovered/Resolved]
  - Pancytopenia [Recovered/Resolved]
  - Acute kidney injury [Recovered/Resolved]

NARRATIVE: CASE EVENT DATE: 20180419
